FAERS Safety Report 6046266-6 (Version None)
Quarter: 2009Q1

REPORT INFORMATION
  Report Type: 
  Country: None (occurrence: None)
  Receive Date: 20090122
  Receipt Date: 20090120
  Transmission Date: 20090719
  Serious: Yes (Hospitalization)
  Sender: FDA-Public Use
  Company Number: FR-BRISTOL-MYERS SQUIBB COMPANY-14477459

PATIENT
  Age: 59 Year
  Sex: Female

DRUGS (4)
  1. GLUCOPHAGE [Suspect]
     Route: 048
     Dates: start: 20081010, end: 20081122
  2. ALLOPURINOL [Suspect]
     Dates: start: 20081010, end: 20081122
  3. CLAMOXYL [Suspect]
     Route: 048
     Dates: start: 20081114, end: 20081119
  4. ZESTRIL [Suspect]
     Route: 048
     Dates: start: 20081010, end: 20081122

REACTIONS (4)
  - DERMATITIS EXFOLIATIVE [None]
  - ECZEMA [None]
  - HEPATITIS [None]
  - TOXIC SKIN ERUPTION [None]
